FAERS Safety Report 12190078 (Version 1)
Quarter: 2016Q1

REPORT INFORMATION
  Report Type: Spontaneous
  Country: US (occurrence: None)
  Receive Date: 20160317
  Receipt Date: 20160317
  Transmission Date: 20160526
  Serious: Yes (Other)
  Sender: FDA-Public Use
  Company Number: None

PATIENT
  Age: 49 Year
  Sex: Female

DRUGS (1)
  1. XELODA [Suspect]
     Active Substance: CAPECITABINE
     Route: 048

REACTIONS (4)
  - Fatigue [None]
  - Diarrhoea [None]
  - Nausea [None]
  - Anal fissure [None]

NARRATIVE: CASE EVENT DATE: 20160316
